FAERS Safety Report 19316695 (Version 1)
Quarter: 2021Q2

REPORT INFORMATION
  Report Type: Spontaneous
  Country: GR (occurrence: GR)
  Receive Date: 20210527
  Receipt Date: 20210527
  Transmission Date: 20210717
  Serious: Yes (Death, Hospitalization)
  Sender: FDA-Public Use
  Company Number: GR-ELI_LILLY_AND_COMPANY-GR202105011206

PATIENT
  Age: 83 Year
  Sex: Female

DRUGS (1)
  1. FORSTEO 250UG/ML [Suspect]
     Active Substance: TERIPARATIDE
     Indication: OSTEOPOROSIS
     Dosage: 20 UG, DAILY
     Route: 058
     Dates: start: 201906, end: 20210520

REACTIONS (7)
  - Hypertension [Fatal]
  - Myocardial infarction [Fatal]
  - Fall [Unknown]
  - Ankle fracture [Not Recovered/Not Resolved]
  - Neoplasm [Not Recovered/Not Resolved]
  - Hypokinesia [Unknown]
  - Coronary artery disease [Fatal]

NARRATIVE: CASE EVENT DATE: 202008
